FAERS Safety Report 12697523 (Version 2)
Quarter: 2016Q3

REPORT INFORMATION
  Report Type: Spontaneous
  Country: PK (occurrence: PK)
  Receive Date: 20160830
  Receipt Date: 20160922
  Transmission Date: 20161109
  Serious: Yes (Other)
  Sender: FDA-Public Use
  Company Number: PK-NOVOPROD-506618

PATIENT
  Age: 11 Year
  Sex: Female

DRUGS (3)
  1. NOVOSEVEN [Suspect]
     Active Substance: COAGULATION FACTOR VIIA RECOMBINANT HUMAN
     Indication: HAEMARTHROSIS
  2. NOVOSEVEN [Suspect]
     Active Substance: COAGULATION FACTOR VIIA RECOMBINANT HUMAN
     Indication: FACTOR VII DEFICIENCY
     Dosage: 15 ?G/KG SIX HOURLY FOR 2 WEEKS
     Route: 065
  3. NOVOSEVEN [Suspect]
     Active Substance: COAGULATION FACTOR VIIA RECOMBINANT HUMAN
     Indication: PROCEDURAL HAEMORRHAGE
     Dosage: 30 ?G/KG SIX HOURLY FOR 2 WEEKS
     Route: 065

REACTIONS (4)
  - Drug ineffective [Unknown]
  - Anti factor VII antibody positive [Unknown]
  - Haemorrhage [Unknown]
  - Haemoglobin decreased [Unknown]
